FAERS Safety Report 7936981-9 (Version None)
Quarter: 2011Q4

REPORT INFORMATION
  Report Type: 
  Country: None (occurrence: None)
  Receive Date: 20111123
  Receipt Date: 20111111
  Transmission Date: 20120403
  Serious: Yes (Other)
  Sender: FDA-Public Use
  Company Number: CN-MYLANLABS-2011S1023730

PATIENT
  Age: 3 Decade
  Sex: Male

DRUGS (7)
  1. LEVETIRACETAM [Interacting]
     Dosage: INCREASED TO 1.5G BY 30 JULY
     Dates: start: 20090717
  2. LEVETIRACETAM [Suspect]
     Indication: PARTIAL SEIZURES
     Dosage: DOSE FROM 28 AUG NOT CLEARLY STATED
     Dates: start: 20090717
  3. CLONAZEPAM [Concomitant]
     Indication: PARTIAL SEIZURES
     Route: 041
  4. LEVETIRACETAM [Interacting]
     Dosage: STARTING DOSE. INCREASED AT A RATE OF 0.5MG/3 DAYS UNTIL 1.5G REACHED
     Dates: start: 20090717
  5. PHENOBARBITAL TAB [Interacting]
     Indication: PARTIAL SEIZURES
     Dosage: INITIALLY 0.2G THEN DECREASED AFTER INITIATION OF LEVETIRACETAM (11 AUG)
     Route: 041
  6. PHENOBARBITAL TAB [Interacting]
     Dosage: INITIALLY 0.2G THEN DECREASED AFTER INITIATION OF LEVETIRACETAM (11 AUG)
     Route: 041
  7. LEVETIRACETAM [Interacting]
     Dosage: INCREASED TO 2G ON 12 AUG
     Dates: start: 20090717

REACTIONS (3)
  - PARTIAL SEIZURES [None]
  - ANTICONVULSANT DRUG LEVEL DECREASED [None]
  - DRUG INTERACTION [None]
